FAERS Safety Report 9734444 (Version 3)
Quarter: 2014Q1

REPORT INFORMATION
  Report Type: Spontaneous
  Country: US (occurrence: US)
  Receive Date: 20131206
  Receipt Date: 20140107
  Transmission Date: 20141002
  Serious: Yes (Other)
  Sender: FDA-Public Use
  Company Number: US-BEH-2013038331

PATIENT
  Age: 54 Year
  Sex: Male
  Weight: 108 kg

DRUGS (11)
  1. ZEMAIRA [Suspect]
     Route: 042
     Dates: start: 20131003, end: 20131003
  2. ZEMAIRA [Suspect]
     Indication: ALPHA-1 ANTI-TRYPSIN DEFICIENCY
     Route: 042
     Dates: start: 20131030, end: 20131030
  3. ALBUTEROL [Concomitant]
  4. DIPHENHYDRAMINE [Concomitant]
  5. HEPARIN [Concomitant]
  6. LIDOCAINE/PRILOCAINE [Concomitant]
  7. EPI-PEN [Concomitant]
  8. NADOLOL [Concomitant]
  9. AZITHROMYCIN [Concomitant]
  10. ADVAIR [Concomitant]
  11. SPIRIVA [Concomitant]

REACTIONS (14)
  - Back pain [Recovered/Resolved]
  - Pain [Recovered/Resolved]
  - Hypersensitivity [Recovered/Resolved]
  - Burning sensation [Recovered/Resolved]
  - Arthralgia [Recovered/Resolved]
  - Muscle spasms [Recovered/Resolved]
  - Pyrexia [Unknown]
  - Chest discomfort [Recovering/Resolving]
  - Anxiety [Recovering/Resolving]
  - Dyspnoea [Recovering/Resolving]
  - Back pain [Recovered/Resolved]
  - Blood pressure increased [Recovered/Resolved]
  - Cough [Recovered/Resolved]
  - Drug ineffective [Recovered/Resolved]
